FAERS Safety Report 9215901 (Version 2)
Quarter: 2013Q3

REPORT INFORMATION
  Report Type: Spontaneous
  Country: US (occurrence: None)
  Receive Date: 20130405
  Receipt Date: 20130809
  Transmission Date: 20140515
  Serious: Yes (Death, Other)
  Sender: FDA-Public Use
  Company Number: JPI-P-030833

PATIENT
  Age: 34 Year
  Sex: Female

DRUGS (2)
  1. XYREM (500 MILLIGRAM/MILLILITERS, SOLUTION) (SODIUM OXYBATE) [Suspect]
     Indication: DRUG ABUSE
     Route: 048
  2. UNSPECIFIED INGREDIENT [Suspect]
     Indication: DRUG ABUSE

REACTIONS (1)
  - Death [None]
